FAERS Safety Report 9257685 (Version 2)
Quarter: 2013Q2

REPORT INFORMATION
  Report Type: Spontaneous
  Country: DE (occurrence: DE)
  Receive Date: 20130426
  Receipt Date: 20130508
  Transmission Date: 20140414
  Serious: Yes (Hospitalization)
  Sender: FDA-Public Use
  Company Number: DE-JNJFOC-20130408179

PATIENT
  Age: 62 Year
  Sex: Female

DRUGS (12)
  1. RISPERDAL [Suspect]
     Indication: PRODUCT USED FOR UNKNOWN INDICATION
     Route: 048
  2. RISPERDAL [Suspect]
     Indication: PRODUCT USED FOR UNKNOWN INDICATION
     Route: 048
     Dates: start: 20121228
  3. RISPERDAL [Suspect]
     Indication: PRODUCT USED FOR UNKNOWN INDICATION
     Route: 048
     Dates: start: 20121206, end: 20121227
  4. RISPERDAL [Suspect]
     Indication: PRODUCT USED FOR UNKNOWN INDICATION
     Route: 048
     Dates: start: 20121101, end: 20121205
  5. SEROQUEL PROLONG [Interacting]
     Indication: PRODUCT USED FOR UNKNOWN INDICATION
     Route: 048
     Dates: start: 20120812
  6. QUILONUM RETARD [Suspect]
     Indication: PRODUCT USED FOR UNKNOWN INDICATION
     Dosage: 675-900 MG
     Route: 048
     Dates: start: 20120101
  7. L-THYROXINE [Concomitant]
     Route: 048
     Dates: start: 20120902
  8. RAMIPRIL [Concomitant]
     Route: 048
     Dates: start: 20110101
  9. MADOPAR [Concomitant]
     Dosage: 100 MG/25 MG
     Route: 048
     Dates: start: 20120901
  10. AGOMELATINE [Concomitant]
     Route: 048
     Dates: start: 20120824
  11. METOPROGAMMA [Concomitant]
     Route: 048
     Dates: start: 20110111
  12. SIMVASTATIN [Concomitant]
     Route: 048
     Dates: start: 20110101

REACTIONS (2)
  - Akathisia [Recovered/Resolved]
  - Drug interaction [Unknown]
